FAERS Safety Report 25755318 (Version 1)
Quarter: 2025Q3

REPORT INFORMATION
  Report Type: Spontaneous
  Country: US (occurrence: None)
  Receive Date: 20250903
  Receipt Date: 20250903
  Transmission Date: 20251021
  Serious: No
  Sender: Alvotech
  Company Number: US-ALVOTECHPMS-2025-ALVOTECHPMS-005042

PATIENT
  Age: 33 Year
  Sex: Male

DRUGS (1)
  1. ADALIMUMAB-RYVK [Suspect]
     Active Substance: ADALIMUMAB-RYVK
     Indication: Sarcoidosis
     Dosage: ONCE A WEEK
     Route: 058

REACTIONS (4)
  - Purpura [Not Recovered/Not Resolved]
  - Skin discolouration [Not Recovered/Not Resolved]
  - Dry skin [Not Recovered/Not Resolved]
  - Off label use [Unknown]
